FAERS Safety Report 9004485 (Version 1)
Quarter: 2013Q1

REPORT INFORMATION
  Report Type: Spontaneous
  Country: US (occurrence: None)
  Receive Date: 20130103
  Receipt Date: 20130103
  Transmission Date: 20140127
  Serious: No
  Sender: FDA-Public Use
  Company Number: None

PATIENT
  Age: 5 Year
  Sex: Female
  Weight: 16.56 kg

DRUGS (1)
  1. DECADRON [Suspect]
     Indication: ORAL PAIN
     Dosage: 8ML ONCE PO
     Route: 048
     Dates: start: 20121223, end: 20121223

REACTIONS (4)
  - Anger [None]
  - Aggression [None]
  - Psychotic disorder [None]
  - Discomfort [None]
